FAERS Safety Report 9157816 (Version 1)
Quarter: 2013Q1

REPORT INFORMATION
  Report Type: Spontaneous
  Country: US (occurrence: None)
  Receive Date: 20130311
  Receipt Date: 20130311
  Transmission Date: 20140127
  Serious: Yes (Other)
  Sender: FDA-Public Use
  Company Number: None

PATIENT
  Age: 50 Year
  Sex: Female

DRUGS (1)
  1. BUSPIRONE [Suspect]
     Route: 048
     Dates: start: 20130227, end: 20130228

REACTIONS (1)
  - Unevaluable event [None]
